FAERS Safety Report 10239575 (Version 1)
Quarter: 2014Q2

REPORT INFORMATION
  Report Type: Spontaneous
  Country: CH (occurrence: CH)
  Receive Date: 20140616
  Receipt Date: 20140616
  Transmission Date: 20141212
  Serious: Yes (Life-Threatening, Hospitalization)
  Sender: FDA-Public Use
  Company Number: CH-PFIZER INC-2014160518

PATIENT
  Age: 27 Year
  Sex: Female

DRUGS (3)
  1. LYRICA [Suspect]
     Indication: MUSCULOSKELETAL PAIN
     Dosage: 75 MG, 1X/DAY
     Route: 048
     Dates: start: 20140407, end: 20140408
  2. INFLAMAC [Suspect]
     Indication: MUSCULOSKELETAL PAIN
     Dosage: DOSAGE UNKNOWN, TWICE DAILY
     Route: 048
     Dates: start: 20140407, end: 201404
  3. SPIRICORT [Suspect]
     Indication: MUSCULOSKELETAL PAIN
     Dosage: 50 MG, 1X/DAY
     Route: 048
     Dates: start: 20140407

REACTIONS (10)
  - Acute generalised exanthematous pustulosis [Recovering/Resolving]
  - Dermatitis exfoliative [Unknown]
  - Pruritus [Unknown]
  - Leukocytosis [Unknown]
  - Neutrophilia [Unknown]
  - Pyrexia [Recovered/Resolved]
  - C-reactive protein increased [Recovered/Resolved]
  - Transaminases increased [Unknown]
  - Blood pressure decreased [Recovered/Resolved]
  - Tachycardia [Recovered/Resolved]
